FAERS Safety Report 16227835 (Version 1)
Quarter: 2019Q2

REPORT INFORMATION
  Report Type: Spontaneous
  Country: US (occurrence: US)
  Receive Date: 20190423
  Receipt Date: 20190423
  Transmission Date: 20190711
  Serious: Yes (Other)
  Sender: FDA-Public Use
  Company Number: US-PFIZER INC-2019165117

PATIENT
  Age: 71 Year
  Sex: Female
  Weight: 57 kg

DRUGS (1)
  1. CLINDAMYCIN HCL [Suspect]
     Active Substance: CLINDAMYCIN HYDROCHLORIDE
     Indication: KNEE OPERATION
     Dosage: UNK

REACTIONS (2)
  - Product use in unapproved indication [Unknown]
  - Clostridium difficile infection [Unknown]
